FAERS Safety Report 7123885-7 (Version None)
Quarter: 2010Q4

REPORT INFORMATION
  Report Type: 
  Country: None (occurrence: None)
  Receive Date: 20101125
  Receipt Date: 20101113
  Transmission Date: 20110411
  Serious: Yes (Hospitalization)
  Sender: FDA-Public Use
  Company Number: US-ELI_LILLY_AND_COMPANY-US201007000927

PATIENT
  Sex: Male
  Weight: 54.422 kg

DRUGS (4)
  1. FORTEO [Suspect]
     Indication: OSTEOPOROSIS
     Dosage: 20 UG, DAILY (1/D)
     Route: 065
     Dates: start: 20100601
  2. FORTEO [Suspect]
     Dosage: 20 UG, DAILY (1/D)
     Route: 065
  3. FORTEO [Suspect]
     Dosage: 20 UG, DAILY (1/D)
     Route: 065
  4. PREDNISONE [Concomitant]

REACTIONS (11)
  - ASTHENIA [None]
  - BALANCE DISORDER [None]
  - BLOOD ELECTROLYTES ABNORMAL [None]
  - BONE DENSITY DECREASED [None]
  - EXOPHTHALMOS [None]
  - EYE SWELLING [None]
  - HEADACHE [None]
  - HYPERTENSION [None]
  - OCULAR HYPERAEMIA [None]
  - VISION BLURRED [None]
  - VOMITING [None]
